FAERS Safety Report 6304800-2 (Version None)
Quarter: 2009Q3

REPORT INFORMATION
  Report Type: 
  Country: None (occurrence: None)
  Receive Date: 20090811
  Receipt Date: 20090807
  Transmission Date: 20100115
  Serious: Yes (Hospitalization, Other)
  Sender: FDA-Public Use
  Company Number: MX-ABBOTT-09P-107-0590225-00

PATIENT
  Age: 71 Year
  Sex: Female

DRUGS (1)
  1. HUMIRA [Suspect]
     Indication: COLITIS ULCERATIVE
     Route: 058
     Dates: start: 20090323, end: 20090712

REACTIONS (4)
  - ANAEMIA [None]
  - DIARRHOEA [None]
  - ERYTHEMA [None]
  - WEIGHT DECREASED [None]
